FAERS Safety Report 9832343 (Version 1)
Quarter: 2014Q1

REPORT INFORMATION
  Report Type: Spontaneous
  Country: US (occurrence: US)
  Receive Date: 20140121
  Receipt Date: 20140121
  Transmission Date: 20141002
  Serious: No
  Sender: FDA-Public Use
  Company Number: US-TARO-2013P1021595

PATIENT
  Sex: Female

DRUGS (3)
  1. CLOTRIMAZOLE [Suspect]
     Indication: FUNGAL INFECTION
     Route: 061
     Dates: start: 20131121
  2. KETOCONAZOLE CREAM [Concomitant]
  3. A Z ABSORBENT POWDER [Concomitant]

REACTIONS (2)
  - Dizziness [Recovered/Resolved]
  - Vertigo [Recovered/Resolved]
